FAERS Safety Report 4591841-9 (Version None)
Quarter: 2005Q1

REPORT INFORMATION
  Report Type: 
  Country: None (occurrence: None)
  Receive Date: 20050125
  Receipt Date: 20040818
  Transmission Date: 20050727
  Serious: No
  Sender: FDA-Public Use
  Company Number: USA040875827

PATIENT
  Age: 73 Year
  Sex: Female
  Weight: 81 kg

DRUGS (5)
  1. FORTEO [Suspect]
     Indication: OSTEOPOROSIS
     Dosage: 20 UG/1 DAY
     Dates: start: 20030701
  2. AVAPRO [Concomitant]
  3. CALCIUM GLUCONATE [Concomitant]
  4. GLUCOSAMINE [Concomitant]
  5. EVISTA [Concomitant]

REACTIONS (2)
  - FEELING ABNORMAL [None]
  - PARAESTHESIA [None]
